FAERS Safety Report 14060603 (Version 3)
Quarter: 2017Q4

REPORT INFORMATION
  Report Type: Report from Study
  Country: None (occurrence: CO)
  Receive Date: 20171007
  Receipt Date: 20171121
  Transmission Date: 20180321
  Serious: Yes (Other)
  Sender: FDA-Public Use
  Company Number: CO-ABBVIE-17K-036-2123919-00

PATIENT
  Age: 32 Year
  Sex: Male
  Weight: 79 kg

DRUGS (2)
  1. MESALAZINE [Concomitant]
     Active Substance: MESALAMINE
     Indication: PRODUCT USED FOR UNKNOWN INDICATION
  2. HUMIRA [Suspect]
     Active Substance: ADALIMUMAB
     Indication: COLITIS ULCERATIVE
     Route: 058
     Dates: start: 20150730, end: 20170917

REACTIONS (9)
  - Thyroid mass [Recovering/Resolving]
  - Lymphoma [Unknown]
  - Asthenia [Recovering/Resolving]
  - Lung infiltration [Recovering/Resolving]
  - Lymphadenopathy [Recovering/Resolving]
  - Productive cough [Recovering/Resolving]
  - Abdominal lymphadenopathy [Recovering/Resolving]
  - Mediastinal disorder [Recovering/Resolving]
  - Toxoplasmosis [Not Recovered/Not Resolved]

NARRATIVE: CASE EVENT DATE: 20170920
